FAERS Safety Report 9058414 (Version 1)
Quarter: 2013Q1

REPORT INFORMATION
  Report Type: Spontaneous
  Country: US (occurrence: US)
  Receive Date: 20130211
  Receipt Date: 20130211
  Transmission Date: 20140127
  Serious: No
  Sender: FDA-Public Use
  Company Number: US-009507513-1302USA003769

PATIENT
  Sex: Female

DRUGS (2)
  1. DULERA [Suspect]
     Indication: LUNG DISORDER
     Dosage: 200MCG/5MCG, TWO PUFF TWICE A DAY
     Route: 055
     Dates: start: 201002
  2. THYROID [Concomitant]

REACTIONS (3)
  - Candida infection [Not Recovered/Not Resolved]
  - Cough [Unknown]
  - Product quality issue [Unknown]
